FAERS Safety Report 9199282 (Version 2)
Quarter: 2013Q2

REPORT INFORMATION
  Report Type: Spontaneous
  Country: US (occurrence: US)
  Receive Date: 20130329
  Receipt Date: 20130530
  Transmission Date: 20140414
  Serious: No
  Sender: FDA-Public Use
  Company Number: US-009507513-1303USA010935

PATIENT
  Sex: Female
  Weight: 122 kg

DRUGS (5)
  1. TEMODAR [Suspect]
     Indication: GLIOBLASTOMA MULTIFORME
     Dosage: 300 MG, UNK
     Route: 048
  2. DEXAMETHASONE [Concomitant]
     Indication: BRAIN OEDEMA
     Dosage: 1 MG, BID
     Route: 048
     Dates: start: 20130315
  3. RANITIDINE [Concomitant]
     Indication: GASTRIC DISORDER
     Dosage: 150 MG, BID
     Route: 048
     Dates: start: 20130320, end: 20130509
  4. LISINOPRIL [Concomitant]
     Indication: HYPERTENSION
     Dosage: UNK
     Route: 048
     Dates: start: 20130328
  5. PERCOCET [Concomitant]
     Indication: PAIN
     Dosage: 5/325MG
     Route: 048
     Dates: start: 20120927

REACTIONS (2)
  - Therapeutic response unexpected [Not Recovered/Not Resolved]
  - Menstruation normal [Not Recovered/Not Resolved]
